FAERS Safety Report 7360970-9 (Version None)
Quarter: 2011Q1

REPORT INFORMATION
  Report Type: 
  Country: None (occurrence: None)
  Receive Date: 20110310
  Receipt Date: 20101119
  Transmission Date: 20110831
  Serious: Yes (Congenital Anomaly)
  Sender: FDA-Public Use
  Company Number: ADR-UNK-015

PATIENT
  Age: 280 Day
  Sex: Female
  Weight: 3.66 kg

DRUGS (3)
  1. METRONIDAZOLE [Concomitant]
  2. LAMIVUDINE + ZIDOVUDINE [Suspect]
     Indication: ACQUIRED IMMUNODEFICIENCY SYNDROME
     Dosage: BID, ORAL
     Route: 048
     Dates: start: 20080716, end: 20100721
  3. ATAZANAVIR SULFATE [Concomitant]

REACTIONS (3)
  - ATRIAL SEPTAL DEFECT [None]
  - MATERNAL DRUGS AFFECTING FOETUS [None]
  - CONGENITAL CARDIOVASCULAR ANOMALY [None]
